FAERS Safety Report 17135064 (Version 1)
Quarter: 2019Q4

REPORT INFORMATION
  Report Type: Spontaneous
  Country: US (occurrence: US)
  Receive Date: 20191118
  Receipt Date: 20191118
  Transmission Date: 20200122
  Serious: Yes (Hospitalization)
  Sender: FDA-Public Use
  Company Number: None

PATIENT
  Age: 56 Year
  Sex: Female

DRUGS (1)
  1. HUMIRA [Suspect]
     Active Substance: ADALIMUMAB
     Indication: PSORIATIC ARTHROPATHY
     Dosage: ?          OTHER DOSE:1 PEN;OTHER FREQUENCY:Q 14 DAYS;?
     Route: 058
     Dates: start: 20190504

REACTIONS (2)
  - Cataract operation [None]
  - Rotator cuff repair [None]

NARRATIVE: CASE EVENT DATE: 20191011
